FAERS Safety Report 19847167 (Version 3)
Quarter: 2022Q4

REPORT INFORMATION
  Report Type: Report from Study
  Country: CN (occurrence: CN)
  Receive Date: 20210917
  Receipt Date: 20221213
  Transmission Date: 20230113
  Serious: Yes (Hospitalization)
  Sender: FDA-Public Use
  Company Number: CN-PFIZER INC-202101167862

PATIENT
  Age: 73 Year
  Sex: Male
  Weight: 50 kg

DRUGS (4)
  1. PACLITAXEL [Suspect]
     Active Substance: PACLITAXEL
     Indication: Squamous cell carcinoma of lung
     Dosage: BSAX175, EVERY 3 WEEKS
     Route: 041
     Dates: start: 20210723, end: 20210812
  2. CARBOPLATIN [Suspect]
     Active Substance: CARBOPLATIN
     Indication: Squamous cell carcinoma of lung
     Dosage: AUC5, EVERY 3 WEEKS. TRADE NAME BOBEI
     Route: 041
     Dates: start: 20210723, end: 20210812
  3. INVESTIGATIONAL PRODUCT [Suspect]
     Active Substance: INVESTIGATIONAL PRODUCT
     Indication: Squamous cell carcinoma of lung
     Dosage: UNK UNK, EVERY 3 WEEKS
     Route: 042
     Dates: start: 20210722, end: 20210811
  4. MEGESTROL ACETATE [Concomitant]
     Active Substance: MEGESTROL ACETATE
     Dosage: 160 MG, 2X/DAY (MEGESTROL ACETATE DISPERSIBLE TABLETS)
     Route: 048
     Dates: start: 20210811

REACTIONS (1)
  - Left ventricular dysfunction [Recovering/Resolving]

NARRATIVE: CASE EVENT DATE: 20210831
